FAERS Safety Report 12586278 (Version 1)
Quarter: 2016Q3

REPORT INFORMATION
  Report Type: Spontaneous
  Country: US (occurrence: None)
  Receive Date: 20160722
  Receipt Date: 20160722
  Transmission Date: 20161109
  Serious: Yes (Other)
  Sender: FDA-Public Use
  Company Number: None

PATIENT
  Age: 46 Year
  Sex: Male
  Weight: 122.47 kg

DRUGS (1)
  1. 30 DEXTROAMP-AMPHET ER 30 MG, 30MG ACTAVIS ELIZABETH [Suspect]
     Active Substance: AMPHETAMINE ASPARTATE\AMPHETAMINE SULFATE\DEXTROAMPHETAMINE SACCHARATE\DEXTROAMPHETAMINE SULFATE
     Indication: NARCOLEPSY
     Dosage: 2 CAPSULE(S) IN THE MORNING TAKEN BY MOUTH
     Route: 048
     Dates: start: 20160718, end: 20160720

REACTIONS (5)
  - Muscular weakness [None]
  - Product substitution issue [None]
  - Fatigue [None]
  - Lethargy [None]
  - Drug ineffective [None]

NARRATIVE: CASE EVENT DATE: 20160719
